FAERS Safety Report 8133016-2 (Version None)
Quarter: 2012Q1

REPORT INFORMATION
  Report Type: 
  Country: None (occurrence: None)
  Receive Date: 20120213
  Receipt Date: 20120203
  Transmission Date: 20120608
  Serious: Yes (Hospitalization, Other)
  Sender: FDA-Public Use
  Company Number: PHHY2011CA27398

PATIENT
  Sex: Female

DRUGS (4)
  1. SANDOSTATIN LAR [Suspect]
     Dosage: 20 MG, EVERY 4 WEEK
     Route: 030
  2. HYDROMORPHONE HCL [Concomitant]
  3. SANDOSTATIN LAR [Suspect]
     Indication: NEOPLASM MALIGNANT
     Dosage: 20 MG, QMO
     Route: 030
     Dates: start: 20110302
  4. SANDOSTATIN LAR [Suspect]
     Dosage: 20 MG, QMO
     Route: 030

REACTIONS (10)
  - INTESTINAL OBSTRUCTION [None]
  - BLOOD PRESSURE SYSTOLIC INCREASED [None]
  - HYPOPHAGIA [None]
  - GENERAL PHYSICAL HEALTH DETERIORATION [None]
  - WOUND [None]
  - ABDOMINAL PAIN [None]
  - VOMITING [None]
  - NAUSEA [None]
  - OEDEMA PERIPHERAL [None]
  - JOINT SWELLING [None]
